APPROVED DRUG PRODUCT: ISORDIL
Active Ingredient: ISOSORBIDE DINITRATE
Strength: 40MG
Dosage Form/Route: TABLET, EXTENDED RELEASE;ORAL
Application: N012882 | Product #001
Applicant: WYETH AYERST LABORATORIES
Approved: Jul 29, 1988 | RLD: No | RS: No | Type: DISCN